FAERS Safety Report 10052950 (Version 1)
Quarter: 2014Q1

REPORT INFORMATION
  Report Type: Spontaneous
  Country: JP (occurrence: None)
  Receive Date: 20140331
  Receipt Date: 20140331
  Transmission Date: 20141002
  Serious: Yes (Other)
  Sender: FDA-Public Use
  Company Number: 2014JP00312

PATIENT
  Sex: 0

DRUGS (4)
  1. IRINOTECAN [Suspect]
     Indication: COLORECTAL CANCER RECURRENT
     Dosage: 150MG/M2, 90 MINUTE INFUSION, INTRAVENOUS
     Route: 042
  2. FOLINIC ACID [Suspect]
     Indication: COLORECTAL CANCER RECURRENT
     Dosage: 200MG/M2 2 HOUR INFUSION, INTRAVENOUS
     Route: 042
  3. FLUOROURACIL [Suspect]
     Indication: COLORECTAL CANCER RECURRENT
     Dosage: 400MG/M2 BOLUS INFUSION, INTRAVENOUS
     Route: 040
  4. BEVACIZUMAB (BEVACIZUMAB) [Suspect]
     Indication: COLORECTAL CANCER RECURRENT
     Dosage: 5MG/KG, ON DAY 3 OF THE 2 WEEK CYCLE

REACTIONS (1)
  - Breast abscess [None]
